FAERS Safety Report 14085513 (Version 2)
Quarter: 2017Q4

REPORT INFORMATION
  Report Type: Spontaneous
  Country: CN (occurrence: CN)
  Receive Date: 20171013
  Receipt Date: 20171018
  Transmission Date: 20180321
  Serious: Yes (Other)
  Sender: FDA-Public Use
  Company Number: CN-ROCHE-2007746

PATIENT
  Age: 74 Year
  Sex: Male
  Weight: 72 kg

DRUGS (3)
  1. ACTILYSE [Suspect]
     Active Substance: ALTEPLASE
     Indication: VENOUS THROMBOSIS
     Dosage: TIME: 11:21
     Route: 042
     Dates: start: 20170805, end: 20170805
  2. ACTILYSE [Suspect]
     Active Substance: ALTEPLASE
     Dosage: VIA INFUSION PUMP
     Route: 042
     Dates: start: 20170805, end: 20170805
  3. ACTILYSE [Suspect]
     Active Substance: ALTEPLASE
     Route: 042
     Dates: start: 20170805, end: 20170805

REACTIONS (1)
  - Anaphylactic shock [Not Recovered/Not Resolved]

NARRATIVE: CASE EVENT DATE: 20170805
